FAERS Safety Report 12909685 (Version 3)
Quarter: 2016Q4

REPORT INFORMATION
  Report Type: Spontaneous
  Country: IT (occurrence: IT)
  Receive Date: 20161104
  Receipt Date: 20161128
  Transmission Date: 20170207
  Serious: Yes (Other)
  Sender: FDA-Public Use
  Company Number: IT-ROCHE-1841443

PATIENT
  Age: 74 Year
  Sex: Male

DRUGS (11)
  1. HYDROXYZINE HYDROCHLORIDE. [Concomitant]
     Active Substance: HYDROXYZINE HYDROCHLORIDE
  2. CEFTRIAXONE. [Suspect]
     Active Substance: CEFTRIAXONE
     Indication: PNEUMONITIS
     Route: 065
  3. AZITHROMYCIN ANHYDROUS. [Concomitant]
     Active Substance: AZITHROMYCIN ANHYDROUS
  4. MEROPENEM. [Concomitant]
     Active Substance: MEROPENEM
  5. PIPERACILLIN/TAZOBACTAM [Concomitant]
     Active Substance: PIPERACILLIN SODIUM\TAZOBACTAM SODIUM
  6. LEVETIRACETAM. [Concomitant]
     Active Substance: LEVETIRACETAM
  7. TEICOPLANIN [Concomitant]
     Active Substance: TEICOPLANIN
  8. FONDAPARINUX [Concomitant]
     Active Substance: FONDAPARINUX
  9. LEVOFLOXACIN. [Suspect]
     Active Substance: LEVOFLOXACIN
     Indication: PNEUMONITIS
     Route: 065
  10. PHENOBARBITAL. [Concomitant]
     Active Substance: PHENOBARBITAL
     Indication: SEIZURE
  11. PHENOBARBITAL. [Concomitant]
     Active Substance: PHENOBARBITAL
     Indication: ALCOHOL WITHDRAWAL SYNDROME

REACTIONS (2)
  - Gastrointestinal bacterial infection [Recovered/Resolved]
  - Deep vein thrombosis [Recovered/Resolved]
